FAERS Safety Report 6764243-4 (Version None)
Quarter: 2010Q2

REPORT INFORMATION
  Report Type: 
  Country: None (occurrence: None)
  Receive Date: 20100608
  Receipt Date: 20100526
  Transmission Date: 20101027
  Serious: Yes (Other)
  Sender: FDA-Public Use
  Company Number: 7006366

PATIENT
  Sex: Female

DRUGS (1)
  1. REBIF [Suspect]
     Dosage: 44 MCG
     Dates: start: 20100126, end: 20100526

REACTIONS (4)
  - ANGER [None]
  - MALAISE [None]
  - NEUTROPHIL COUNT DECREASED [None]
  - WHITE BLOOD CELL COUNT DECREASED [None]
